FAERS Safety Report 17208083 (Version 1)
Quarter: 2019Q4

REPORT INFORMATION
  Report Type: Spontaneous
  Country: US (occurrence: US)
  Receive Date: 20191227
  Receipt Date: 20191227
  Transmission Date: 20200122
  Serious: Yes (Other)
  Sender: FDA-Public Use
  Company Number: US-AKORN PHARMACEUTICALS-2019AKN02543

PATIENT
  Age: 56 Year
  Sex: Female

DRUGS (4)
  1. ANXIETY MEDICATIONS (UNSPECIFIED) [Concomitant]
  2. ALLERGY MEDICATION (UNSPECIFIED) [Concomitant]
  3. FIBROMYALGIA MEDICATIONS (UNSPECIFIED) [Concomitant]
  4. MYORISAN [Suspect]
     Active Substance: ISOTRETINOIN
     Indication: ACNE
     Dosage: 40 MG, 1X/DAY
     Dates: start: 20191104, end: 20191207

REACTIONS (2)
  - Depression [Recovered/Resolved]
  - Off label use [Recovered/Resolved]

NARRATIVE: CASE EVENT DATE: 20191106
